FAERS Safety Report 6188396-4 (Version None)
Quarter: 2009Q2

REPORT INFORMATION
  Report Type: 
  Country: None (occurrence: None)
  Receive Date: 20090513
  Receipt Date: 20090507
  Transmission Date: 20091009
  Serious: Yes (Hospitalization)
  Sender: FDA-Public Use
  Company Number: MX-JNJFOC-20090501930

PATIENT
  Age: 41 Year
  Sex: Male

DRUGS (1)
  1. FLOXSTAT [Suspect]
     Indication: URINARY TRACT INFECTION
     Dosage: 1 TABLET UNIQUE DOSE
     Route: 048

REACTIONS (2)
  - GASTRITIS [None]
  - VOMITING [None]
